FAERS Safety Report 5910720-5 (Version None)
Quarter: 2008Q4

REPORT INFORMATION
  Report Type: 
  Country: None (occurrence: None)
  Receive Date: 20081007
  Receipt Date: 20080428
  Transmission Date: 20090506
  Serious: No
  Sender: FDA-Public Use
  Company Number: US-ASTRAZENECA-2008UW06353

PATIENT
  Age: 71 Year
  Sex: Female
  Weight: 99.1 kg

DRUGS (9)
  1. ARIMIDEX [Suspect]
     Indication: BREAST CANCER FEMALE
     Route: 048
     Dates: start: 20070911
  2. ACTOS [Concomitant]
     Route: 048
     Dates: start: 20070911
  3. ALPRAZOLAM [Concomitant]
     Route: 048
     Dates: start: 20070911
  4. CALCIUM [Concomitant]
     Route: 048
     Dates: start: 20070911
  5. CHOLESTIN [Concomitant]
     Route: 048
     Dates: start: 20070911
  6. GLUCOSAMINE CHONRO COMPLEX [Concomitant]
     Route: 048
     Dates: start: 20070911
  7. HYDROCHLOROTHIAZIDE [Concomitant]
     Route: 048
     Dates: start: 20070911
  8. MULTI-VITAMINS [Concomitant]
     Route: 048
     Dates: start: 20070911
  9. QUINIDINE SULFATE [Concomitant]
     Route: 048
     Dates: start: 20070911

REACTIONS (3)
  - FATIGUE [None]
  - MIGRAINE [None]
  - MUSCLE SPASMS [None]
